FAERS Safety Report 4843645-7 (Version None)
Quarter: 2005Q4

REPORT INFORMATION
  Report Type: 
  Country: None (occurrence: None)
  Receive Date: 20051125
  Receipt Date: 20051114
  Transmission Date: 20060501
  Serious: Yes (Death)
  Sender: FDA-Public Use
  Company Number: 2005-US-00057

PATIENT
  Age: 39 Year
  Sex: Male
  Weight: 220.9018 kg

DRUGS (1)
  1. CLOZAPINE [Suspect]
     Indication: PSYCHOTIC DISORDER
     Dosage: 400 MG QD ORAL
     Route: 048
     Dates: start: 20030201, end: 20050801

REACTIONS (6)
  - AORTIC ARTERIOSCLEROSIS [None]
  - CARDIO-RESPIRATORY ARREST [None]
  - CARDIOMEGALY [None]
  - FOREIGN BODY TRAUMA [None]
  - OBESITY [None]
  - PULMONARY CONGESTION [None]
